FAERS Safety Report 23414738 (Version 1)
Quarter: 2024Q1

REPORT INFORMATION
  Report Type: Other
  Country: CN (occurrence: CN)
  Receive Date: 20240118
  Receipt Date: 20240118
  Transmission Date: 20240410
  Serious: Yes (Other)
  Sender: FDA-Public Use
  Company Number: CN-ROCHE-3492207

PATIENT
  Age: 63 Year
  Sex: Male
  Weight: 42 kg

DRUGS (14)
  1. CAPECITABINE [Suspect]
     Active Substance: CAPECITABINE
     Indication: Gastric cancer stage IV
     Dosage: FOR 6 CYCLES, SECOND LINE
     Route: 065
  2. CAPECITABINE [Suspect]
     Active Substance: CAPECITABINE
     Dosage: FOR 8 CYCLES
     Route: 065
     Dates: start: 20211025, end: 20220329
  3. CAPECITABINE [Suspect]
     Active Substance: CAPECITABINE
     Dosage: FOR 1 CYCLE, THIRD LINE TREATMENT REGIMEN
     Route: 065
     Dates: start: 20220419, end: 20220825
  4. BEVACIZUMAB [Suspect]
     Active Substance: BEVACIZUMAB
     Indication: Vascular injury
     Dosage: CHEMOTHERAPY COMBINED WITH IMMUNOTHERAPY (MFOLFOX6 + XINDILIMAB) FOR 1 CYCLE.
     Route: 065
     Dates: start: 20210521, end: 20210918
  5. BEVACIZUMAB [Suspect]
     Active Substance: BEVACIZUMAB
     Indication: Gastric cancer stage IV
  6. OXALIPLATIN [Suspect]
     Active Substance: OXALIPLATIN
     Indication: Gastric cancer stage IV
     Route: 065
  7. OXALIPLATIN [Suspect]
     Active Substance: OXALIPLATIN
     Route: 065
  8. OXALIPLATIN [Suspect]
     Active Substance: OXALIPLATIN
     Route: 065
     Dates: start: 20220419, end: 20220825
  9. OXALIPLATIN [Suspect]
     Active Substance: OXALIPLATIN
     Dosage: FOR 1 CYCLE
     Route: 065
     Dates: start: 20220419, end: 20220825
  10. LEUCOVORIN CALCIUM [Suspect]
     Active Substance: LEUCOVORIN CALCIUM
     Indication: Gastric cancer stage IV
     Route: 065
  11. FLUOROURACIL [Suspect]
     Active Substance: FLUOROURACIL
     Indication: Vascular injury
     Dosage: CHEMOTHERAPY COMBINED WITH IMMUNOTHERAPY (MFOLFOX6 + XINDILIMAB) FOR 1 CYCLE.
     Route: 065
     Dates: start: 20210512, end: 20210918
  12. FLUOROURACIL [Suspect]
     Active Substance: FLUOROURACIL
     Indication: Gastric cancer stage IV
     Route: 065
  13. LEUCOVORIN [Suspect]
     Active Substance: LEUCOVORIN\LEUCOVORIN CALCIUM
     Indication: Vascular injury
     Dosage: CHEMOTHERAPY COMBINED WITH IMMUNOTHERAPY (MFOLFOX6 + XINDILIMAB) FOR 1 CYCLE.
     Route: 065
     Dates: start: 20210521, end: 20210918
  14. LEUCOVORIN [Suspect]
     Active Substance: LEUCOVORIN\LEUCOVORIN CALCIUM
     Indication: Gastric cancer stage IV

REACTIONS (2)
  - Myelosuppression [Unknown]
  - Gastrointestinal disorder [Unknown]

NARRATIVE: CASE EVENT DATE: 20220101
